FAERS Safety Report 16213100 (Version 3)
Quarter: 2019Q2

REPORT INFORMATION
  Report Type: Spontaneous
  Country: CH (occurrence: CH)
  Receive Date: 20190418
  Receipt Date: 20190430
  Transmission Date: 20190711
  Serious: Yes (Hospitalization, Other)
  Sender: FDA-Public Use
  Company Number: CH-PFIZER INC-2019167927

PATIENT
  Age: 81 Year
  Sex: Female
  Weight: 59 kg

DRUGS (25)
  1. PANTOZOL [Suspect]
     Active Substance: PANTOPRAZOLE SODIUM
     Dosage: 40 MG, QD
     Route: 048
  2. PREDNISONE. [Suspect]
     Active Substance: PREDNISONE
     Dosage: 40 MG, UNK
     Route: 048
     Dates: start: 20190122
  3. SEROPRAM (CITALOPRAM HYDROCHLORIDE) [Suspect]
     Active Substance: CITALOPRAM HYDROCHLORIDE
     Dosage: UNK
     Route: 065
     Dates: start: 20190111
  4. TOREM [TORASEMIDE] [Interacting]
     Active Substance: TORSEMIDE
     Dosage: UNK
     Route: 065
     Dates: start: 20190112
  5. FOLVITE [FOLIC ACID] [Concomitant]
     Dosage: UNK
     Dates: start: 201410, end: 20190111
  6. METHOTREXATE SODIUM. [Suspect]
     Active Substance: METHOTREXATE SODIUM
     Dosage: UNK
     Route: 058
     Dates: start: 201410, end: 20190111
  7. METHOTREXATE SODIUM. [Suspect]
     Active Substance: METHOTREXATE SODIUM
     Dosage: UNK
     Route: 065
     Dates: start: 20190105
  8. DAFALGAN [Suspect]
     Active Substance: ACETAMINOPHEN
     Dosage: 1 G, QD
     Route: 065
  9. CONCOR [Concomitant]
     Active Substance: BISOPROLOL FUMARATE
     Dosage: 5 MG, BID
     Dates: start: 20190111
  10. BECOZYME C FORTE [Concomitant]
     Dosage: UNK UNK, QD
  11. LATANOPROST. [Concomitant]
     Active Substance: LATANOPROST
     Dosage: UNK UNK, BID
  12. VI-DE 3 [Concomitant]
     Active Substance: CHOLECALCIFEROL
     Dosage: UNK
  13. CEFTRIAXONE. [Concomitant]
     Active Substance: CEFTRIAXONE
     Dosage: UNK
     Dates: start: 20190113, end: 20190115
  14. PREDNISONE. [Suspect]
     Active Substance: PREDNISONE
     Dosage: 5 MG, UNK
     Route: 048
     Dates: start: 20190113, end: 20190317
  15. PREDNISONE. [Suspect]
     Active Substance: PREDNISONE
     Dosage: 80 MG, UNK
     Route: 048
     Dates: start: 20190118, end: 20190121
  16. TAZOBACTAM [Suspect]
     Active Substance: TAZOBACTAM
     Dosage: UNK UNK, TID
     Route: 041
     Dates: start: 20190116, end: 20190124
  17. CO VALSARTAN [VALSARTAN] [Concomitant]
     Active Substance: VALSARTAN
     Dosage: UNK UNK, QD
     Dates: end: 20190113
  18. MARCOUMAR [Suspect]
     Active Substance: PHENPROCOUMON
     Dosage: UNK
     Route: 065
     Dates: end: 20190111
  19. NOPIL [Interacting]
     Active Substance: SULFAMETHOXAZOLE\TRIMETHOPRIM
     Dosage: UNK UNK, TID
     Route: 065
     Dates: start: 20190117
  20. SYMBICORT [Concomitant]
     Active Substance: BUDESONIDE\FORMOTEROL FUMARATE DIHYDRATE
     Dosage: UNK UNK, BID
     Dates: end: 20190118
  21. VALTREX [Concomitant]
     Active Substance: VALACYCLOVIR HYDROCHLORIDE
     Dosage: 500 MG, BID
     Dates: start: 20190116
  22. PREDNISONE. [Suspect]
     Active Substance: PREDNISONE
     Dosage: 5 MG, QD
     Route: 048
     Dates: end: 20190112
  23. MYRTAVEN [Concomitant]
     Dosage: 58 MG, QD
  24. DIGOXIN. [Concomitant]
     Active Substance: DIGOXIN
     Dosage: UNK
     Dates: start: 20190112, end: 20190121
  25. CO AMOXI [AMOXICILLIN SODIUM;CLAVULANATE POTASSIUM] [Concomitant]
     Dosage: UNK
     Dates: start: 20190115, end: 20190116

REACTIONS (6)
  - Upper gastrointestinal haemorrhage [Recovered/Resolved]
  - Cellulitis [Unknown]
  - Gastric mucosal hypertrophy [Unknown]
  - Pancytopenia [Recovered/Resolved]
  - Drug interaction [Recovered/Resolved]
  - Pneumocystis jirovecii pneumonia [Unknown]

NARRATIVE: CASE EVENT DATE: 20190111
